FAERS Safety Report 5581577-X (Version None)
Quarter: 2008Q1

REPORT INFORMATION
  Report Type: 
  Country: None (occurrence: None)
  Receive Date: 20080104
  Receipt Date: 20071204
  Transmission Date: 20080703
  Serious: No
  Sender: FDA-Public Use
  Company Number: US-BAYER-200715543NA

PATIENT
  Age: 72 Year
  Sex: Male

DRUGS (3)
  1. LEVITRA [Suspect]
     Indication: DRUG USE FOR UNKNOWN INDICATION
     Dosage: AS USED: 10 MG  UNIT DOSE: 10 MG
     Route: 048
     Dates: start: 20070901
  2. LEVITRA [Suspect]
     Dosage: AS USED: 20 MG  UNIT DOSE: 20 MG
     Route: 048
     Dates: start: 20071101
  3. SYNTHROID [Concomitant]

REACTIONS (1)
  - ERECTILE DYSFUNCTION [None]
